FAERS Safety Report 6427011-9 (Version None)
Quarter: 2009Q4

REPORT INFORMATION
  Report Type: 
  Country: None (occurrence: None)
  Receive Date: 20091104
  Receipt Date: 20091029
  Transmission Date: 20100525
  Serious: Yes (Hospitalization, Other)
  Sender: FDA-Public Use
  Company Number: US-MERCK-0910USA04034

PATIENT
  Age: 52 Year
  Sex: Female

DRUGS (6)
  1. ZOCOR [Suspect]
     Route: 048
  2. TRILIPIX [Suspect]
     Indication: HYPERLIPIDAEMIA
     Route: 048
     Dates: start: 20090813, end: 20090917
  3. PROVELL [Concomitant]
     Route: 065
  4. CLOPIDOGREL BISULFATE [Concomitant]
     Route: 065
  5. OMEPRAZOLE SODIUM [Concomitant]
     Route: 065
  6. SIMVASTATIN [Concomitant]
     Indication: HYPERLIPIDAEMIA
     Route: 048

REACTIONS (2)
  - PANCREATITIS [None]
  - PULMONARY EMBOLISM [None]
